FAERS Safety Report 19120957 (Version 1)
Quarter: 2021Q2

REPORT INFORMATION
  Report Type: Spontaneous
  Country: US (occurrence: US)
  Receive Date: 20210412
  Receipt Date: 20210412
  Transmission Date: 20210717
  Serious: No
  Sender: FDA-Public Use
  Company Number: US-TOLMAR, INC.-21US025878

PATIENT
  Age: 29 Year
  Sex: Male

DRUGS (1)
  1. KETOCONAZOLE. [Suspect]
     Active Substance: KETOCONAZOLE
     Indication: ALOPECIA
     Dosage: UNK
     Route: 061

REACTIONS (2)
  - Off label use [Unknown]
  - Rash [Recovered/Resolved]
